FAERS Safety Report 4884596-1 (Version None)
Quarter: 2006Q1

REPORT INFORMATION
  Report Type: 
  Country: None (occurrence: None)
  Receive Date: 20060119
  Receipt Date: 20021014
  Transmission Date: 20060701
  Serious: Yes (Hospitalization)
  Sender: FDA-Public Use
  Company Number: FR-AVENTIS-200214126FR

PATIENT
  Sex: Female

DRUGS (1)
  1. TAXOTERE [Suspect]
     Indication: BREAST CANCER
     Route: 042
     Dates: start: 20020905, end: 20020926

REACTIONS (6)
  - CATHETER SITE INFECTION [None]
  - COUGH [None]
  - HYPERHIDROSIS [None]
  - HYPOKALAEMIA [None]
  - PYREXIA [None]
  - STAPHYLOCOCCAL INFECTION [None]
